FAERS Safety Report 4330335-2 (Version None)
Quarter: 2004Q1

REPORT INFORMATION
  Report Type: 
  Country: None (occurrence: None)
  Receive Date: 20040329
  Receipt Date: 20040318
  Transmission Date: 20041129
  Serious: Yes (Other)
  Sender: FDA-Public Use
  Company Number: 2004204055DZ

PATIENT
  Age: 48 Year
  Sex: Female

DRUGS (2)
  1. CELEBREX [Suspect]
     Indication: MUSCULOSKELETAL PAIN
     Dosage: 200 MG, QD, ORAL
     Route: 048
     Dates: start: 20040115, end: 20040118
  2. GELDENE [Concomitant]

REACTIONS (3)
  - HEPATITIS B [None]
  - HEPATITIS FULMINANT [None]
  - JAUNDICE CHOLESTATIC [None]
